FAERS Safety Report 18253272 (Version 1)
Quarter: 2020Q3

REPORT INFORMATION
  Report Type: Spontaneous
  Country: FR (occurrence: FR)
  Receive Date: 20200910
  Receipt Date: 20200910
  Transmission Date: 20201103
  Serious: Yes (Life-Threatening)
  Sender: FDA-Public Use
  Company Number: NVSC2020FR247488

PATIENT
  Age: 40 Year
  Sex: Male
  Weight: 75 kg

DRUGS (3)
  1. TRAMADOL. [Suspect]
     Active Substance: TRAMADOL
     Indication: POISONING DELIBERATE
     Dosage: 20 DF, ONCE/SINGLE
     Route: 048
     Dates: start: 20200719, end: 20200719
  2. THERALENE [Suspect]
     Active Substance: TRIMEPRAZINE
     Indication: POISONING DELIBERATE
     Dosage: 30 ML, ONCE/SINGLE
     Route: 048
     Dates: start: 20200719, end: 20200719
  3. CLOMIPRAMINE [Suspect]
     Active Substance: CLOMIPRAMINE
     Indication: POISONING DELIBERATE
     Dosage: 50 DF, ONCE/SINGLE
     Route: 048
     Dates: start: 20200719, end: 20200719

REACTIONS (5)
  - Electrocardiogram QT prolonged [Recovered/Resolved]
  - Haemodynamic instability [Recovered/Resolved]
  - Coma [Recovered/Resolved]
  - Cardiac failure [Recovered/Resolved]
  - Acute respiratory distress syndrome [Recovered/Resolved]

NARRATIVE: CASE EVENT DATE: 20200719
